FAERS Safety Report 7184367-X (Version None)
Quarter: 2010Q4

REPORT INFORMATION
  Report Type: 
  Country: None (occurrence: None)
  Receive Date: 20101222
  Receipt Date: 20101217
  Transmission Date: 20110411
  Serious: Yes (Hospitalization)
  Sender: FDA-Public Use
  Company Number: IT-BRISTOL-MYERS SQUIBB COMPANY-15440357

PATIENT
  Age: 60 Year
  Sex: Male

DRUGS (5)
  1. CISPLATIN [Suspect]
     Dosage: 1 DF: 100MG/M SUSP (2) ON DAY 1 AND 2
  2. DOXORUBICIN HCL [Suspect]
  3. FLUPHENAZINE DECANOATE [Suspect]
     Indication: DEPRESSION
     Route: 048
  4. AMITRIPTYLINE [Suspect]
     Indication: DEPRESSION
     Dosage: 1 DF: 25+50 MG DAILY
     Route: 048
  5. HYDROCHLOROTHIAZIDE [Suspect]
     Route: 048

REACTIONS (4)
  - AUTOMATISM [None]
  - COMA [None]
  - INAPPROPRIATE ANTIDIURETIC HORMONE SECRETION [None]
  - RESPIRATORY ALKALOSIS [None]
